FAERS Safety Report 5838571-0 (Version None)
Quarter: 2008Q3

REPORT INFORMATION
  Report Type: 
  Country: None (occurrence: None)
  Receive Date: 20080808
  Receipt Date: 20080805
  Transmission Date: 20090109
  Serious: Yes (Death)
  Sender: FDA-Public Use
  Company Number: JP-ASTRAZENECA-2008AP05843

PATIENT
  Age: 20 Year
  Sex: Male

DRUGS (10)
  1. XYLOCAINE W/ EPINEPHRINE [Suspect]
     Indication: INFILTRATION ANAESTHESIA
     Route: 045
     Dates: start: 20080602, end: 20080602
  2. XYLOCAINE [Concomitant]
     Indication: LOCAL ANAESTHESIA
     Route: 045
     Dates: start: 20080602, end: 20080602
  3. BOSMIN [Concomitant]
     Indication: LOCAL ANAESTHESIA
     Route: 045
     Dates: start: 20080602, end: 20080602
  4. ATARAX [Concomitant]
     Indication: ANAESTHETIC PREMEDICATION
     Route: 030
     Dates: start: 20080602, end: 20080602
  5. PENTAZOCINE LACTATE [Concomitant]
     Indication: ANAESTHETIC PREMEDICATION
     Route: 030
     Dates: start: 20080602, end: 20080602
  6. ATROPINE SULFATE [Concomitant]
     Indication: ANAESTHETIC PREMEDICATION
     Route: 030
     Dates: start: 20080602, end: 20080602
  7. AMICALIQ [Concomitant]
     Route: 041
     Dates: start: 20080602, end: 20080602
  8. PACETCOOL [Concomitant]
     Route: 041
     Dates: start: 20080602, end: 20080602
  9. REPTILASE [Concomitant]
     Route: 041
     Dates: start: 20080602, end: 20080602
  10. COCAINE HYDROCHLORIDE [Concomitant]
     Indication: LOCAL ANAESTHESIA
     Dosage: MIXED WITH 4.75 ML OF SALINE
     Route: 045
     Dates: start: 20080602, end: 20080602

REACTIONS (1)
  - SHOCK [None]
